FAERS Safety Report 8215170-7 (Version None)
Quarter: 2012Q1

REPORT INFORMATION
  Report Type: 
  Country: None (occurrence: None)
  Receive Date: 20120229
  Receipt Date: 20110505
  Transmission Date: 20120608
  Serious: Yes (Other)
  Sender: FDA-Public Use
  Company Number: PHHY2011US23598

PATIENT
  Sex: Male

DRUGS (5)
  1. LONARID-N (CAFFEIN, CODEINE PHOSPHATE, PARACETAMOL) [Concomitant]
  2. LEGOFER (FERRIPROTINATE) [Concomitant]
  3. PREZOLON (PREDNISOLONE) [Concomitant]
  4. OMNIC TOCAS (TAMSULOSIN HYDROCHLORIDE) [Concomitant]
  5. NEORAL [Suspect]
     Indication: LUNG TRANSPLANT
     Dosage: 100 MG, BID, ORAL
     Route: 048
     Dates: start: 19920101

REACTIONS (6)
  - FUNGAL INFECTION [None]
  - ONYCHOMYCOSIS [None]
  - NAIL DISORDER [None]
  - SKIN LESION [None]
  - DRY SKIN [None]
  - ONYCHOCLASIS [None]
